FAERS Safety Report 14625936 (Version 2)
Quarter: 2018Q2

REPORT INFORMATION
  Report Type: Spontaneous
  Country: FR (occurrence: FR)
  Receive Date: 20180312
  Receipt Date: 20180510
  Transmission Date: 20180711
  Serious: Yes (Other)
  Sender: FDA-Public Use
  Company Number: PHHY2018FR037808

PATIENT
  Age: 78 Year
  Sex: Male

DRUGS (2)
  1. EXFORGE [Suspect]
     Active Substance: AMLODIPINE BESYLATE\VALSARTAN
     Dosage: 1 DF, QD (AMLODIPINE 5 MG/ VALSARTAN 80 MG)
     Route: 065
     Dates: start: 201711
  2. EXFORGE [Suspect]
     Active Substance: AMLODIPINE BESYLATE\VALSARTAN
     Indication: HYPERTENSION
     Dosage: 1 DF, QD (AMLODIPINE 5 MG/ VALSARTAN 160 MG)
     Route: 065
     Dates: start: 201706, end: 201711

REACTIONS (2)
  - Somnolence [Not Recovered/Not Resolved]
  - Hypertension [Unknown]
